FAERS Safety Report 6046701-3 (Version None)
Quarter: 2009Q1

REPORT INFORMATION
  Report Type: 
  Country: None (occurrence: None)
  Receive Date: 20090122
  Receipt Date: 20090112
  Transmission Date: 20090719
  Serious: Yes (Hospitalization)
  Sender: FDA-Public Use
  Company Number: FR-PFIZER INC-2009156108

PATIENT

DRUGS (1)
  1. CELEBREX [Suspect]
     Route: 048
     Dates: start: 20080801, end: 20081105

REACTIONS (1)
  - COLITIS ISCHAEMIC [None]
